FAERS Safety Report 11866451 (Version 1)
Quarter: 2015Q4

REPORT INFORMATION
  Report Type: Spontaneous
  Country: VN (occurrence: VN)
  Receive Date: 20151224
  Receipt Date: 20151224
  Transmission Date: 20160305
  Serious: Yes (Other)
  Sender: FDA-Public Use
  Company Number: VN-ROCHE-1682055

PATIENT

DRUGS (2)
  1. PEGASYS [Suspect]
     Active Substance: PEGINTERFERON ALFA-2A
     Indication: CHRONIC HEPATITIS B
     Dosage: PFS 180 MCG /0.5 ML
     Route: 058
     Dates: start: 20150907
  2. ENTECAVIR. [Concomitant]
     Active Substance: ENTECAVIR
     Indication: CHRONIC HEPATITIS B
     Dosage: UNKNOWN
     Route: 065

REACTIONS (1)
  - Hepatitis B surface antigen positive [Not Recovered/Not Resolved]

NARRATIVE: CASE EVENT DATE: 20151107
